FAERS Safety Report 19493469 (Version 1)
Quarter: 2021Q3

REPORT INFORMATION
  Report Type: Spontaneous
  Country: US (occurrence: US)
  Receive Date: 20210705
  Receipt Date: 20210705
  Transmission Date: 20211014
  Serious: Yes (Hospitalization)
  Sender: FDA-Public Use
  Company Number: US-PFIZER INC-2021678275

PATIENT
  Age: 62 Year
  Sex: Female

DRUGS (3)
  1. LANTUS [Suspect]
     Active Substance: INSULIN GLARGINE
     Indication: TYPE 2 DIABETES MELLITUS
     Dosage: 40 UNITS IN THE MORNING AND 30 UNITS IN THE EVENIG Q12H
  2. SOLU?MEDROL [Suspect]
     Active Substance: METHYLPREDNISOLONE SODIUM SUCCINATE
     Indication: ASTHMA
     Dosage: UNK
  3. INSULIN LISPRO [Suspect]
     Active Substance: INSULIN LISPRO
     Indication: TYPE 2 DIABETES MELLITUS
     Dosage: UNK

REACTIONS (3)
  - Inappropriate schedule of product administration [Unknown]
  - Asthma [Unknown]
  - Product use issue [Unknown]
